FAERS Safety Report 5709569-8 (Version None)
Quarter: 2008Q2

REPORT INFORMATION
  Report Type: 
  Country: None (occurrence: None)
  Receive Date: 20080418
  Receipt Date: 20080415
  Transmission Date: 20081010
  Serious: Yes (Other)
  Sender: FDA-Public Use
  Company Number: DE-AVENTIS-200810432DE

PATIENT
  Age: 58 Year
  Sex: Female
  Weight: 78 kg

DRUGS (10)
  1. TAXOTERE [Suspect]
     Indication: BREAST CANCER
     Route: 042
     Dates: start: 20071002, end: 20071113
  2. TAXOTERE [Suspect]
     Indication: CHEMOTHERAPY
     Route: 042
     Dates: start: 20071002, end: 20071113
  3. FLUOROURACIL [Suspect]
     Indication: BREAST CANCER
     Route: 042
     Dates: start: 20070730, end: 20070911
  4. FLUOROURACIL [Suspect]
     Indication: CHEMOTHERAPY
     Route: 042
     Dates: start: 20070730, end: 20070911
  5. EPIRUBICIN [Suspect]
     Indication: BREAST CANCER
     Route: 042
     Dates: start: 20070730, end: 20070911
  6. EPIRUBICIN [Suspect]
     Indication: CHEMOTHERAPY
     Route: 042
     Dates: start: 20070730, end: 20070911
  7. CYCLOPHOSPHAMIDE [Suspect]
     Indication: BREAST CANCER
     Route: 042
     Dates: start: 20070730, end: 20070911
  8. CYCLOPHOSPHAMIDE [Suspect]
     Indication: CHEMOTHERAPY
     Route: 042
     Dates: start: 20070730, end: 20070911
  9. ARIMIDEX [Concomitant]
     Indication: HORMONE THERAPY
     Route: 048
     Dates: start: 20071114
  10. TRANSTEC [Concomitant]
     Indication: PAIN
     Dosage: DOSE: NOT REPORTED

REACTIONS (5)
  - BONE INFARCTION [None]
  - JOINT EFFUSION [None]
  - MENISCUS LESION [None]
  - OEDEMA [None]
  - PATHOLOGICAL FRACTURE [None]
